FAERS Safety Report 7563721-8 (Version None)
Quarter: 2011Q2

REPORT INFORMATION
  Report Type: 
  Country: None (occurrence: None)
  Receive Date: 20110622
  Receipt Date: 20110617
  Transmission Date: 20111010
  Serious: Yes (Hospitalization, Other)
  Sender: FDA-Public Use
  Company Number: US-MERCK-1010USA00171

PATIENT
  Age: 51 Year
  Sex: Female
  Weight: 62 kg

DRUGS (19)
  1. FOSAMAX [Suspect]
     Route: 048
     Dates: start: 20011201, end: 20080101
  2. CALCIUM (UNSPECIFIED) AND VITAMIN D (UNSPECIFIED) [Concomitant]
     Route: 048
     Dates: start: 19900101, end: 20100501
  3. TYLENOL-500 [Concomitant]
     Route: 065
  4. ALENDRONATE SODIUM [Suspect]
     Indication: OSTEOPENIA
     Route: 048
     Dates: start: 20080101, end: 20090926
  5. PEPCID [Concomitant]
     Route: 048
  6. FOSAMAX [Suspect]
     Route: 048
     Dates: start: 20010101
  7. HEPARIN [Concomitant]
     Route: 058
  8. VITAMINS (UNSPECIFIED) [Concomitant]
     Route: 065
  9. COLACE [Concomitant]
     Route: 065
  10. ALENDRONATE SODIUM [Suspect]
     Indication: OSTEOPOROSIS
     Route: 048
     Dates: start: 20080101, end: 20090926
  11. BETAINE [Concomitant]
     Route: 065
  12. FLONASE [Concomitant]
     Route: 055
  13. MAGNESIA [MILK OF] [Concomitant]
     Route: 065
  14. FOSAMAX [Suspect]
     Route: 048
     Dates: start: 20010101
  15. FOSAMAX [Suspect]
     Indication: OSTEOPENIA
     Route: 048
     Dates: start: 20010810, end: 20011201
  16. FOSAMAX [Suspect]
     Indication: OSTEOPOROSIS
     Route: 048
     Dates: start: 20010810, end: 20011201
  17. FOSAMAX [Suspect]
     Route: 048
     Dates: start: 20011201, end: 20080101
  18. CHONDROITIN SULFATE SODIUM AND GLUCOSAMINE SULFATE [Concomitant]
     Route: 048
     Dates: start: 19990101
  19. ASPIRIN [Concomitant]
     Route: 065

REACTIONS (29)
  - HAEMORRHAGIC ANAEMIA [None]
  - NASAL OBSTRUCTION [None]
  - BACK PAIN [None]
  - BLOOD GLUCOSE INCREASED [None]
  - HYPOKALAEMIA [None]
  - ALLERGY TO ARTHROPOD BITE [None]
  - FEMUR FRACTURE [None]
  - HYPERTENSION [None]
  - RECTAL POLYP [None]
  - ATROPHIC VULVOVAGINITIS [None]
  - HAEMORRHOIDS [None]
  - PHARYNGEAL DISORDER [None]
  - UTERINE DISORDER [None]
  - BLOOD URINE PRESENT [None]
  - DYSPLASTIC NAEVUS [None]
  - FURUNCLE [None]
  - FALL [None]
  - INAPPROPRIATE SCHEDULE OF DRUG ADMINISTRATION [None]
  - LOW TURNOVER OSTEOPATHY [None]
  - PROTEIN TOTAL DECREASED [None]
  - BREAST CALCIFICATIONS [None]
  - FOOT FRACTURE [None]
  - ARTHRALGIA [None]
  - STAPHYLOCOCCAL INFECTION [None]
  - BRONCHITIS [None]
  - ANGIODYSPLASIA [None]
  - HYPERCHOLESTEROLAEMIA [None]
  - RHINITIS SEASONAL [None]
  - BLOOD CHOLESTEROL INCREASED [None]
